FAERS Safety Report 20676367 (Version 1)
Quarter: 2022Q2

REPORT INFORMATION
  Report Type: Spontaneous
  Country: US (occurrence: US)
  Receive Date: 20220405
  Receipt Date: 20220405
  Transmission Date: 20220720
  Serious: No
  Sender: FDA-Public Use
  Company Number: US-BRISTOL-MYERS SQUIBB COMPANY-2022-014135

PATIENT
  Age: 79 Year
  Sex: Female

DRUGS (2)
  1. REVLIMID [Suspect]
     Active Substance: LENALIDOMIDE
     Indication: Plasma cell myeloma
     Route: 048
     Dates: start: 202111, end: 202203
  2. REVLIMID [Suspect]
     Active Substance: LENALIDOMIDE
     Dosage: 14 DAYS ON AND 7 DAYS OFF
     Route: 048

REACTIONS (1)
  - Back pain [Unknown]
